FAERS Safety Report 23330763 (Version 1)
Quarter: 2023Q4

REPORT INFORMATION
  Report Type: Spontaneous
  Country: CN (occurrence: CN)
  Receive Date: 20231222
  Receipt Date: 20231222
  Transmission Date: 20240109
  Serious: Yes (Hospitalization, Other)
  Sender: FDA-Public Use
  Company Number: CN-EPICPHARMA-CN-2023EPCLIT01845

PATIENT
  Sex: Male

DRUGS (9)
  1. PANTOPRAZOLE SODIUM [Suspect]
     Active Substance: PANTOPRAZOLE SODIUM
     Indication: Gastric pH decreased
     Dosage: PER DAY
     Route: 065
     Dates: start: 20200515
  2. PANTOPRAZOLE SODIUM [Suspect]
     Active Substance: PANTOPRAZOLE SODIUM
     Dosage: PER DAY
     Route: 065
     Dates: start: 20200530
  3. PANTOPRAZOLE SODIUM [Suspect]
     Active Substance: PANTOPRAZOLE SODIUM
     Dosage: PER DAY
     Route: 065
     Dates: start: 20200615
  4. METHOTREXATE [Suspect]
     Active Substance: METHOTREXATE
     Indication: Acute lymphocytic leukaemia
     Dosage: CYCLE 1
     Route: 065
     Dates: start: 20200515
  5. METHOTREXATE [Suspect]
     Active Substance: METHOTREXATE
     Dosage: CYCLE 2
     Route: 065
     Dates: start: 20200530
  6. METHOTREXATE [Suspect]
     Active Substance: METHOTREXATE
     Dosage: CYCLE 3
     Route: 065
     Dates: start: 20200615
  7. METHOTREXATE [Suspect]
     Active Substance: METHOTREXATE
     Route: 065
     Dates: start: 20200701
  8. LEVOLEUCOVORIN [Concomitant]
     Active Substance: LEVOLEUCOVORIN
     Indication: Product used for unknown indication
     Route: 065
     Dates: start: 20200615
  9. LEVOLEUCOVORIN [Concomitant]
     Active Substance: LEVOLEUCOVORIN
     Route: 065

REACTIONS (3)
  - Drug-induced liver injury [Recovered/Resolved]
  - Mucosal inflammation [Recovered/Resolved]
  - Drug interaction [Unknown]

NARRATIVE: CASE EVENT DATE: 20200518
